FAERS Safety Report 18570936 (Version 1)
Quarter: 2020Q4

REPORT INFORMATION
  Report Type: Spontaneous
  Country: US (occurrence: US)
  Receive Date: 20201202
  Receipt Date: 20201202
  Transmission Date: 20210114
  Serious: No
  Sender: FDA-Public Use
  Company Number: US-ROCHE-2706863

PATIENT
  Age: 2 Year
  Sex: Female
  Weight: 12.71 kg

DRUGS (3)
  1. EVRYSDI [Suspect]
     Active Substance: RISDIPLAM
     Indication: SPINAL MUSCULAR ATROPHY
     Dosage: ONGOING: YES; THROUGH FEEDING TUBE
     Route: 050
     Dates: start: 20201020
  2. EVRYSDI [Suspect]
     Active Substance: RISDIPLAM
     Indication: SPINAL MUSCULAR ATROPHY
  3. EVRYSDI [Suspect]
     Active Substance: RISDIPLAM
     Indication: SPINAL MUSCULAR ATROPHY

REACTIONS (1)
  - Dermatitis diaper [Recovered/Resolved]

NARRATIVE: CASE EVENT DATE: 20201020
